FAERS Safety Report 9448784 (Version 2)
Quarter: 2013Q3

REPORT INFORMATION
  Report Type: Spontaneous
  Country: US (occurrence: US)
  Receive Date: 20130808
  Receipt Date: 20130904
  Transmission Date: 20140515
  Serious: Yes (Hospitalization)
  Sender: FDA-Public Use
  Company Number: US-GILEAD-2013-0080844

PATIENT
  Sex: Female

DRUGS (2)
  1. LETAIRIS [Suspect]
     Indication: PULMONARY HYPERTENSION
     Dosage: 5 MG, UNK
     Route: 048
     Dates: start: 20130515
  2. LETAIRIS [Suspect]
     Indication: SLEEP APNOEA SYNDROME

REACTIONS (5)
  - Haemorrhage [Unknown]
  - Nausea [Recovered/Resolved]
  - Dyspnoea [Recovered/Resolved]
  - Fatigue [Unknown]
  - Anaemia [Unknown]
